FAERS Safety Report 22222874 (Version 1)
Quarter: 2023Q2

REPORT INFORMATION
  Report Type: Other
  Country: None (occurrence: PH)
  Receive Date: 20230418
  Receipt Date: 20230418
  Transmission Date: 20230722
  Serious: Yes (Other)
  Sender: FDA-Public Use
  Company Number: PH-B.Braun Medical Inc.-2140504

PATIENT
  Age: 26 Year
  Sex: Male

DRUGS (2)
  1. POTASSIUM CHLORIDE [Suspect]
     Active Substance: POTASSIUM CHLORIDE
     Indication: Paraesthesia
  2. CEFIXIME [Concomitant]
     Active Substance: CEFIXIME

REACTIONS (1)
  - Drug ineffective [Unknown]
